FAERS Safety Report 21016866 (Version 2)
Quarter: 2022Q3

REPORT INFORMATION
  Report Type: Spontaneous
  Country: JP (occurrence: JP)
  Receive Date: 20220628
  Receipt Date: 20220706
  Transmission Date: 20221027
  Serious: Yes (Other)
  Sender: FDA-Public Use
  Company Number: JP-GLAXOSMITHKLINE-JP2022JPN090828

PATIENT

DRUGS (1)
  1. SERETIDE [Suspect]
     Active Substance: FLUTICASONE PROPIONATE\SALMETEROL XINAFOATE
     Indication: Asthma
     Dosage: UNK, BID, 1 INHALATION/DOSE
     Route: 055

REACTIONS (4)
  - Diabetes mellitus [Not Recovered/Not Resolved]
  - Oral candidiasis [Recovered/Resolved]
  - Symptom recurrence [Recovered/Resolved]
  - Wrong technique in product usage process [Unknown]
